FAERS Safety Report 20068993 (Version 1)
Quarter: 2021Q4

REPORT INFORMATION
  Report Type: Spontaneous
  Country: US (occurrence: US)
  Receive Date: 20211115
  Receipt Date: 20211115
  Transmission Date: 20220303
  Serious: Yes (Other)
  Sender: FDA-Public Use
  Company Number: US-PFIZER INC-202101525244

PATIENT
  Age: 44 Year
  Sex: Female

DRUGS (1)
  1. SIROLIMUS [Suspect]
     Active Substance: SIROLIMUS
     Dosage: UNK
     Dates: start: 2018

REACTIONS (3)
  - Renal impairment [Recovering/Resolving]
  - Ascites [Recovering/Resolving]
  - Lymphoedema [Recovering/Resolving]
